FAERS Safety Report 7804128-5 (Version None)
Quarter: 2011Q4

REPORT INFORMATION
  Report Type: 
  Country: None (occurrence: None)
  Receive Date: 20111010
  Receipt Date: 20111003
  Transmission Date: 20120403
  Serious: Yes (Death, Other)
  Sender: FDA-Public Use
  Company Number: US-ASTELLAS-2011US006548

PATIENT

DRUGS (2)
  1. TELAPREVIR [Concomitant]
     Indication: HEPATITIS C
     Dosage: UNK
     Route: 065
  2. PROGRAF [Suspect]
     Indication: PRODUCT USED FOR UNKNOWN INDICATION
     Dosage: UNK
     Route: 065

REACTIONS (2)
  - HEPATIC FAILURE [None]
  - HEPATIC CIRRHOSIS [None]
